FAERS Safety Report 20225061 (Version 3)
Quarter: 2022Q2

REPORT INFORMATION
  Report Type: Spontaneous
  Country: JP (occurrence: JP)
  Receive Date: 20211223
  Receipt Date: 20220419
  Transmission Date: 20220720
  Serious: Yes (Other)
  Sender: FDA-Public Use
  Company Number: JP-JNJFOC-20211246964

PATIENT
  Age: 61 Year
  Sex: Male

DRUGS (18)
  1. VELCADE [Suspect]
     Active Substance: BORTEZOMIB
     Indication: Plasma cell myeloma
     Dosage: DOSE UNKNOWN
     Route: 058
  2. VELCADE [Suspect]
     Active Substance: BORTEZOMIB
     Dosage: DOSE UNKNOWN
     Route: 058
     Dates: start: 2014, end: 2015
  3. VELCADE [Suspect]
     Active Substance: BORTEZOMIB
     Dosage: DOSE UNKNOWN
     Route: 058
     Dates: start: 2018
  4. DARZALEX [Suspect]
     Active Substance: DARATUMUMAB
     Indication: Plasma cell myeloma
     Dosage: DOSE UNKNOWN
     Route: 041
     Dates: start: 2018, end: 2018
  5. DARZALEX [Suspect]
     Active Substance: DARATUMUMAB
     Dosage: DOSE UNKNOWN
     Route: 041
     Dates: start: 2018
  6. DEXAMETHASONE [Suspect]
     Active Substance: DEXAMETHASONE
     Indication: Plasma cell myeloma
     Dosage: DOSE UNKNOWN
     Route: 065
  7. DEXAMETHASONE [Suspect]
     Active Substance: DEXAMETHASONE
     Dosage: DOSE UNKNOWN
     Route: 065
     Dates: start: 2014, end: 2015
  8. DEXAMETHASONE [Suspect]
     Active Substance: DEXAMETHASONE
     Dosage: DOSE UNKNOWN
     Route: 065
     Dates: start: 2015, end: 2016
  9. DEXAMETHASONE [Suspect]
     Active Substance: DEXAMETHASONE
     Dosage: DOSE UNKNOWN
     Route: 065
     Dates: start: 2016, end: 2018
  10. DEXAMETHASONE [Suspect]
     Active Substance: DEXAMETHASONE
     Dosage: DOSE UNKNOWN
     Route: 065
     Dates: start: 2018, end: 2018
  11. DEXAMETHASONE [Suspect]
     Active Substance: DEXAMETHASONE
     Dosage: DOSE UNKNOWN
     Route: 065
     Dates: start: 2018
  12. LENALIDOMIDE [Suspect]
     Active Substance: LENALIDOMIDE
     Indication: Plasma cell myeloma
     Dosage: DOSE UNKNOWN
     Route: 048
     Dates: start: 2015, end: 2016
  13. LENALIDOMIDE [Suspect]
     Active Substance: LENALIDOMIDE
     Dosage: DOSE UNKNOWN
     Route: 048
     Dates: start: 2018, end: 2018
  14. LENALIDOMIDE [Suspect]
     Active Substance: LENALIDOMIDE
     Dosage: DOSE UNKNOWN
     Route: 048
     Dates: start: 2018
  15. POMALIDOMIDE [Concomitant]
     Active Substance: POMALIDOMIDE
     Dosage: DOSE UNKNOWN
     Route: 048
     Dates: start: 2016, end: 2018
  16. CARFILZOMIB [Concomitant]
     Active Substance: CARFILZOMIB
     Dosage: DOSE UNKNOWN
     Route: 041
     Dates: start: 2018
  17. MELPHALAN [Concomitant]
     Active Substance: MELPHALAN
     Dosage: DOSE UNKNOWN
     Route: 065
     Dates: start: 2011
  18. IXAZOMIB CITRATE [Concomitant]
     Active Substance: IXAZOMIB CITRATE
     Dosage: DOSE UNKNOWN
     Route: 065
     Dates: start: 2018

REACTIONS (6)
  - Neuropathy peripheral [Unknown]
  - Malaise [Unknown]
  - Influenza [Unknown]
  - Compression fracture [Unknown]
  - Platelet count decreased [Unknown]
  - Myalgia [Unknown]

NARRATIVE: CASE EVENT DATE: 20150101
